FAERS Safety Report 17335499 (Version 1)
Quarter: 2020Q1

REPORT INFORMATION
  Report Type: Other
  Country: CA (occurrence: CA)
  Receive Date: 20200128
  Receipt Date: 20200128
  Transmission Date: 20200409
  Serious: Yes (Other)
  Sender: FDA-Public Use
  Company Number: CA-COLGATE PALMOLIVE COMPANY-20200100141

PATIENT

DRUGS (35)
  1. LEFLUNOMIDE. [Suspect]
     Active Substance: LEFLUNOMIDE
  2. CIMZIA [Suspect]
     Active Substance: CERTOLIZUMAB PEGOL
     Indication: RHEUMATOID ARTHRITIS
     Dosage: 400 MG
     Route: 058
  3. VENTOLIN [Concomitant]
     Active Substance: ALBUTEROL SULFATE
  4. CHLORHEXIDINE UNSPECIFIED [Suspect]
     Active Substance: CHLORHEXIDINE
  5. ENBREL [Suspect]
     Active Substance: ETANERCEPT
     Indication: RHEUMATOID ARTHRITIS
     Route: 058
  6. ARAVA [Suspect]
     Active Substance: LEFLUNOMIDE
  7. HYDROXYCHLOROQUINE SULFATE. [Concomitant]
     Active Substance: HYDROXYCHLOROQUINE SULFATE
  8. COENZYME Q10 [Concomitant]
     Active Substance: UBIDECARENONE
  9. DESOGESTREL AND ETHINYL ESTRADIOL [Concomitant]
     Active Substance: DESOGESTREL\ETHINYL ESTRADIOL
  10. ORENCIA [Suspect]
     Active Substance: ABATACEPT
  11. ACTEMRA [Suspect]
     Active Substance: TOCILIZUMAB
  12. HYDROXYCHLOROQUINE [Concomitant]
     Active Substance: HYDROXYCHLOROQUINE
  13. PLAQUENIL [Concomitant]
     Active Substance: HYDROXYCHLOROQUINE SULFATE
  14. CHLORHEXIDINE GLUCONATE UNSPECIFIED [Suspect]
     Active Substance: CHLORHEXIDINE GLUCONATE
  15. IBUPROFEN. [Concomitant]
     Active Substance: IBUPROFEN
  16. VITAMIN C [Concomitant]
     Active Substance: ASCORBIC ACID
  17. CIMZIA [Suspect]
     Active Substance: CERTOLIZUMAB PEGOL
     Dosage: 400 MG, 2 EVERY 1 MONTH
     Route: 058
  18. VITAMIN D NOS [Concomitant]
     Active Substance: VITAMIN D NOS
  19. REACTINE [Concomitant]
  20. CHOLECALCIFEROL [Concomitant]
     Active Substance: CHOLECALCIFEROL
  21. ALFACALCIDOL [Concomitant]
     Active Substance: ALFACALCIDOL
  22. CIMZIA [Suspect]
     Active Substance: CERTOLIZUMAB PEGOL
     Dosage: 200 MG, 2 EVERY 1 MONTH
     Route: 058
  23. METHOTREXATE. [Suspect]
     Active Substance: METHOTREXATE
  24. SIMPONI [Suspect]
     Active Substance: GOLIMUMAB
     Route: 058
  25. TEA, GREEN [Concomitant]
     Active Substance: GREEN TEA LEAF
  26. PANTOPRAZOLE [Concomitant]
     Active Substance: PANTOPRAZOLE
  27. ACETAMINOPHEN. [Suspect]
     Active Substance: ACETAMINOPHEN
  28. SULFAMETHOXAZOLE AND TRIMETHOPRIM [Concomitant]
     Active Substance: SULFAMETHOXAZOLE\TRIMETHOPRIM
  29. PREDNISONE. [Concomitant]
     Active Substance: PREDNISONE
  30. FISH OIL [Concomitant]
     Active Substance: FISH OIL
  31. TYLENOL [Concomitant]
     Active Substance: ACETAMINOPHEN
  32. OXYCODONE [Suspect]
     Active Substance: OXYCODONE
  33. OXYCODONE TEREPHTHALATE [Suspect]
     Active Substance: OXYCODONE TEREPHTHALATE
  34. SULFAMETHOXAZOLE AND TRIMETHOPRIM [Suspect]
     Active Substance: SULFAMETHOXAZOLE\TRIMETHOPRIM
  35. ZOPICLONE [Concomitant]
     Active Substance: ZOPICLONE

REACTIONS (21)
  - Rash [Recovered/Resolved]
  - Asthenia [Recovered/Resolved]
  - Night sweats [Recovered/Resolved]
  - Urticaria [Recovered/Resolved]
  - Peripheral swelling [Recovered/Resolved]
  - Abdominal pain upper [Recovered/Resolved]
  - Lower respiratory tract infection [Recovered/Resolved]
  - Diarrhoea [Recovered/Resolved]
  - Insomnia [Recovered/Resolved]
  - Sinusitis [Recovered/Resolved]
  - Ear pain [Recovered/Resolved]
  - Headache [Recovered/Resolved]
  - Pain [Recovered/Resolved]
  - Back pain [Recovered/Resolved]
  - Pruritus [Recovered/Resolved]
  - Vomiting [Recovered/Resolved]
  - Respiratory disorder [Recovered/Resolved]
  - Body temperature increased [Recovered/Resolved]
  - Contraindicated product administered [Recovered/Resolved]
  - Joint swelling [Recovered/Resolved]
  - Muscle spasticity [Recovered/Resolved]
